FAERS Safety Report 10083940 (Version 1)
Quarter: 2014Q2

REPORT INFORMATION
  Report Type: Spontaneous
  Country: US (occurrence: US)
  Receive Date: 20140417
  Receipt Date: 20140417
  Transmission Date: 20141212
  Serious: No
  Sender: FDA-Public Use
  Company Number: US-009507513-1404USA008017

PATIENT
  Age: 14 Year
  Sex: Male
  Weight: 72.56 kg

DRUGS (3)
  1. CLARITIN [Suspect]
     Indication: HYPERSENSITIVITY
     Dosage: UNK, UNKNOWN
     Route: 048
     Dates: start: 201403
  2. CLARITIN [Suspect]
     Dosage: 10 MG, BID
     Route: 048
     Dates: start: 20140408
  3. CLONIDINE [Concomitant]
     Indication: HYPERTENSION
     Dosage: QUNK, UNKNOWN
     Route: 048

REACTIONS (1)
  - Overdose [Unknown]
